FAERS Safety Report 7170652-4 (Version None)
Quarter: 2010Q4

REPORT INFORMATION
  Report Type: 
  Country: None (occurrence: None)
  Receive Date: 20101206
  Receipt Date: 20101119
  Transmission Date: 20110411
  Serious: Yes (Hospitalization, Other)
  Sender: FDA-Public Use
  Company Number: AUR-APL-2010-02947

PATIENT
  Age: 3 Year
  Sex: Male

DRUGS (1)
  1. CEFDINIR [Suspect]
     Indication: EAR INFECTION
     Dosage: 1TSP - DAILY
     Dates: start: 20101115, end: 20101116

REACTIONS (6)
  - CONDITION AGGRAVATED [None]
  - EAR INFECTION [None]
  - FALL [None]
  - PRODUCT ODOUR ABNORMAL [None]
  - PYREXIA [None]
  - SINUSITIS [None]
